FAERS Safety Report 9804208 (Version 2)
Quarter: 2015Q3

REPORT INFORMATION
  Report Type: Spontaneous
  Country: US (occurrence: None)
  Receive Date: 20140106
  Receipt Date: 20150713
  Transmission Date: 20151125
  Serious: No
  Sender: FDA-Public Use
  Company Number: 2013-00165

PATIENT
  Age: 64 Year
  Sex: Female
  Weight: 45.36 kg

DRUGS (4)
  1. ZICAM COLD REMEDY [Suspect]
     Active Substance: ZINC ACETATE\ZINC GLUCONATE
     Indication: INFLUENZA
     Dosage: 4 SPRAYS ORALLY EVERY 3 HOURS
     Route: 048
     Dates: start: 20131226, end: 20131226
  2. ZICAM COLD REMEDY NASAL SWABS (ZINC) [Suspect]
     Active Substance: ZINC ACETATE\ZINC GLUCONATE
     Indication: INFLUENZA
     Dosage: 1 GEL SWAB INTO NOSE
     Route: 045
     Dates: start: 20131226, end: 20131226
  3. PREMARIN [Concomitant]
     Active Substance: ESTROGENS, CONJUGATED
  4. HYDROCHLOROTHIAZIDE. [Concomitant]
     Active Substance: HYDROCHLOROTHIAZIDE

REACTIONS (3)
  - Glossitis [None]
  - Ageusia [None]
  - Diarrhoea [None]

NARRATIVE: CASE EVENT DATE: 20131226
